FAERS Safety Report 23449332 (Version 4)
Quarter: 2025Q1

REPORT INFORMATION
  Report Type: Report from Study
  Country: US (occurrence: US)
  Receive Date: 20240129
  Receipt Date: 20250326
  Transmission Date: 20250408
  Serious: Yes (Other)
  Sender: AUROBINDO
  Company Number: US-MLMSERVICE-20240111-4766109-1

PATIENT
  Age: 55 Year
  Sex: Female
  Weight: 63.492 kg

DRUGS (2)
  1. MYCOPHENOLIC ACID [Suspect]
     Active Substance: MYCOPHENOLIC ACID
     Indication: Systemic lupus erythematosus
     Route: 065
     Dates: start: 2015, end: 2015
  2. PREDNISONE [Concomitant]
     Active Substance: PREDNISONE
     Indication: Systemic lupus erythematosus
     Route: 065
     Dates: start: 1994

REACTIONS (2)
  - Polyomavirus viraemia [Unknown]
  - JC virus infection [Recovered/Resolved]

NARRATIVE: CASE EVENT DATE: 20150101
